FAERS Safety Report 7051609-0 (Version None)
Quarter: 2010Q4

REPORT INFORMATION
  Report Type: 
  Country: None (occurrence: None)
  Receive Date: 20101019
  Receipt Date: 20101007
  Transmission Date: 20110411
  Serious: Yes (Hospitalization)
  Sender: FDA-Public Use
  Company Number: US-ROCHE-731956

PATIENT
  Sex: Female
  Weight: 70.8 kg

DRUGS (3)
  1. ACTEMRA [Suspect]
     Route: 042
     Dates: start: 20100720
  2. ACTEMRA [Suspect]
     Route: 042
     Dates: start: 20100817
  3. ACTEMRA [Suspect]
     Route: 042
     Dates: start: 20100920

REACTIONS (4)
  - ABDOMINAL ABSCESS [None]
  - ABDOMINAL PAIN UPPER [None]
  - ESCHERICHIA URINARY TRACT INFECTION [None]
  - PLEURITIC PAIN [None]
